FAERS Safety Report 17115844 (Version 1)
Quarter: 2019Q4

REPORT INFORMATION
  Report Type: Spontaneous
  Country: US (occurrence: US)
  Receive Date: 20191205
  Receipt Date: 20191205
  Transmission Date: 20200122
  Serious: No
  Sender: FDA-Public Use
  Company Number: US-PFIZER INC-2019512193

PATIENT
  Age: 71 Year
  Sex: Female
  Weight: 72.57 kg

DRUGS (12)
  1. GABAPENTIN. [Concomitant]
     Active Substance: GABAPENTIN
     Indication: NEURALGIA
     Dosage: 600 MILLIGRAM, TID
     Route: 065
  2. FERROUS SULFATE. [Concomitant]
     Active Substance: FERROUS SULFATE
     Indication: ANAEMIA
     Dosage: 65 MILLIGRAM, QD
     Route: 065
  3. ELIQUIS [Suspect]
     Active Substance: APIXABAN
     Indication: THROMBOSIS PROPHYLAXIS
     Dosage: 5 MILLIGRAM, BID
     Route: 065
  4. VITAMIN E [Concomitant]
     Active Substance: .ALPHA.-TOCOPHEROL
     Indication: VITAMIN SUPPLEMENTATION
     Dosage: 1 A DAY. 1000 IW, 450 MG
     Route: 065
  5. VITAMIN B12 [Concomitant]
     Active Substance: CYANOCOBALAMIN
     Indication: VITAMIN SUPPLEMENTATION
     Dosage: EVERY OTHER DAY
     Route: 065
  6. OMEPRAZOLE. [Concomitant]
     Active Substance: OMEPRAZOLE
     Indication: GASTROOESOPHAGEAL REFLUX DISEASE
     Dosage: 20 MILLIGRAM, QD
     Route: 065
  7. ATENOLOL. [Concomitant]
     Active Substance: ATENOLOL
     Indication: PALPITATIONS
     Dosage: 12.5 MILLIGRAM, QD
     Route: 065
  8. COLECALCIFEROL [Concomitant]
     Active Substance: CHOLECALCIFEROL
     Indication: VITAMIN SUPPLEMENTATION
     Dosage: 25 MCG, 1000 I.U.ONCE A DAY
     Route: 065
  9. CYCLOBENZAPRINE. [Concomitant]
     Active Substance: CYCLOBENZAPRINE
     Indication: MUSCLE RELAXANT THERAPY
     Dosage: 5 MILLIGRAM, BID
     Route: 065
  10. XELJANZ [Suspect]
     Active Substance: TOFACITINIB CITRATE
     Indication: RHEUMATOID ARTHRITIS
     Dosage: 5 MILLIGRAM, BID
     Route: 048
  11. CYMBALTA [Concomitant]
     Active Substance: DULOXETINE HYDROCHLORIDE
     Indication: DEPRESSION
     Dosage: 30 MILLIGRAM, QD
     Route: 065
  12. ZOFRAN [Concomitant]
     Active Substance: ONDANSETRON HYDROCHLORIDE
     Indication: NAUSEA
     Dosage: 4 MILLIGRAM
     Route: 065

REACTIONS (5)
  - Pain [Recovering/Resolving]
  - Fall [Unknown]
  - Bone contusion [Recovering/Resolving]
  - Malaise [Unknown]
  - Contusion [Recovering/Resolving]
